FAERS Safety Report 8611942-5 (Version None)
Quarter: 2012Q3

REPORT INFORMATION
  Report Type: 
  Country: None (occurrence: None)
  Receive Date: 20120822
  Receipt Date: 20120820
  Transmission Date: 20120928
  Serious: Yes (Death)
  Sender: FDA-Public Use
  Company Number: DK-PFIZER INC-2011185510

PATIENT

DRUGS (1)
  1. CYTOTEC [Suspect]
     Indication: INDUCED LABOUR
     Dosage: UNK
     Dates: start: 20090519

REACTIONS (2)
  - MATERNAL EXPOSURE DURING PREGNANCY [None]
  - UMBILICAL CORD AROUND NECK [None]
